FAERS Safety Report 6019626-7 (Version None)
Quarter: 2008Q4

REPORT INFORMATION
  Report Type: 
  Country: None (occurrence: None)
  Receive Date: 20081224
  Receipt Date: 20081216
  Transmission Date: 20090506
  Serious: Yes (Other)
  Sender: FDA-Public Use
  Company Number: US-ELI_LILLY_AND_COMPANY-US200811005041

PATIENT
  Sex: Female

DRUGS (2)
  1. CYMBALTA [Suspect]
     Indication: NEUROPATHY PERIPHERAL
     Dosage: 60 MG, UNK
     Dates: start: 20060801, end: 20081113
  2. INSULIN [Concomitant]

REACTIONS (2)
  - KNEE ARTHROPLASTY [None]
  - VITREOUS HAEMORRHAGE [None]
